FAERS Safety Report 5391697-0 (Version None)
Quarter: 2007Q3

REPORT INFORMATION
  Report Type: 
  Country: None (occurrence: None)
  Receive Date: 20070717
  Receipt Date: 20070703
  Transmission Date: 20080115
  Serious: Yes (Life-Threatening)
  Sender: FDA-Public Use
  Company Number: 2007P1000338

PATIENT
  Age: 50 Year
  Sex: Female

DRUGS (5)
  1. BUSULFAN                  (BUSULFAN) [Suspect]
     Indication: STEM CELL TRANSPLANT
     Dosage: 26.4 ML;QD; IV
     Route: 042
     Dates: start: 20061109, end: 20061110
  2. METHOTREXATE [Suspect]
     Indication: PROPHYLAXIS AGAINST GRAFT VERSUS HOST DISEASE
  3. FLUDARABINE PHOSPHATE [Concomitant]
  4. PHENYTOIN [Concomitant]
  5. NEUPOGEN [Concomitant]

REACTIONS (8)
  - ANOREXIA [None]
  - CYTOMEGALOVIRUS INFECTION [None]
  - DIARRHOEA [None]
  - MALAISE [None]
  - NAUSEA [None]
  - PSEUDOMEMBRANOUS COLITIS [None]
  - SEPSIS [None]
  - STOMATITIS [None]
